FAERS Safety Report 7737436-7 (Version None)
Quarter: 2011Q3

REPORT INFORMATION
  Report Type: 
  Country: None (occurrence: None)
  Receive Date: 20110908
  Receipt Date: 20110830
  Transmission Date: 20111222
  Serious: Yes (Hospitalization)
  Sender: FDA-Public Use
  Company Number: US-GLAXOSMITHKLINE-A0886511A

PATIENT
  Sex: Male
  Weight: 117.3 kg

DRUGS (6)
  1. LISINOPRIL [Concomitant]
  2. FLEXERIL [Concomitant]
  3. GLIPIZIDE [Concomitant]
  4. DILTIAZEM [Concomitant]
  5. AVANDIA [Suspect]
     Indication: DIABETES MELLITUS
     Dosage: 8MG PER DAY
     Route: 048
     Dates: end: 20070501
  6. METFORMIN HCL [Concomitant]

REACTIONS (4)
  - CARDIAC FAILURE CONGESTIVE [None]
  - ANGINA UNSTABLE [None]
  - MYOCARDIAL ISCHAEMIA [None]
  - CORONARY ARTERY DISEASE [None]
